FAERS Safety Report 6078207-X (Version None)
Quarter: 2009Q1

REPORT INFORMATION
  Report Type: 
  Country: None (occurrence: None)
  Receive Date: 20090213
  Receipt Date: 20090203
  Transmission Date: 20090719
  Serious: No
  Sender: FDA-Public Use
  Company Number: AU-ELI_LILLY_AND_COMPANY-AU200812000759

PATIENT
  Sex: Male

DRUGS (2)
  1. ZYPREXA [Suspect]
     Indication: SCHIZOPHRENIA
     Dosage: 30 MG, DAILY (1/D)
     Route: 048
     Dates: start: 20081108, end: 20090107
  2. MINOCYCLINE [Concomitant]
     Indication: ACNE
     Dates: end: 20081203

REACTIONS (3)
  - LEUKOPENIA [None]
  - NEUTROPENIA [None]
  - OVERDOSE [None]
